FAERS Safety Report 8513588-6 (Version None)
Quarter: 2012Q3

REPORT INFORMATION
  Report Type: 
  Country: None (occurrence: None)
  Receive Date: 20120717
  Receipt Date: 20120713
  Transmission Date: 20120928
  Serious: Yes (Other)
  Sender: FDA-Public Use
  Company Number: US-PFIZER INC-2012134184

PATIENT
  Sex: Female

DRUGS (1)
  1. CHANTIX [Suspect]
     Indication: SMOKING CESSATION THERAPY
     Dosage: UNK

REACTIONS (5)
  - SUICIDAL IDEATION [None]
  - MINERAL METABOLISM DISORDER [None]
  - IRRITABILITY [None]
  - DEPRESSION [None]
  - SERUM SEROTONIN INCREASED [None]
